FAERS Safety Report 11248657 (Version 2)
Quarter: 2015Q3

REPORT INFORMATION
  Report Type: Spontaneous
  Country: US (occurrence: US)
  Receive Date: 20150708
  Receipt Date: 20150831
  Transmission Date: 20151125
  Serious: No
  Sender: FDA-Public Use
  Company Number: US-ELI_LILLY_AND_COMPANY-US201002001083

PATIENT
  Age: 48 Year
  Sex: Female

DRUGS (4)
  1. CYMBALTA [Suspect]
     Active Substance: DULOXETINE HYDROCHLORIDE
     Dosage: 60 MG, DAILY (1/D)
     Route: 048
     Dates: start: 200911
  2. CYMBALTA [Suspect]
     Active Substance: DULOXETINE HYDROCHLORIDE
     Indication: DEPRESSION
     Dosage: 30 MG, DAILY (1/D)
     Route: 048
     Dates: start: 200911
  3. LEXAPRO [Concomitant]
     Active Substance: ESCITALOPRAM OXALATE
     Dates: end: 2009
  4. PROZAC [Suspect]
     Active Substance: FLUOXETINE HYDROCHLORIDE
     Dates: start: 2002, end: 2002

REACTIONS (13)
  - Exposure during pregnancy [Recovered/Resolved]
  - Memory impairment [Unknown]
  - Night sweats [Not Recovered/Not Resolved]
  - Weight increased [Not Recovered/Not Resolved]
  - Headache [Not Recovered/Not Resolved]
  - Fatigue [Unknown]
  - Hyperhidrosis [Unknown]
  - Somnolence [Not Recovered/Not Resolved]
  - Stress [Unknown]
  - Attention deficit/hyperactivity disorder [Unknown]
  - Dizziness [Unknown]
  - Hypersomnia [Not Recovered/Not Resolved]
  - Drug effect incomplete [Not Recovered/Not Resolved]

NARRATIVE: CASE EVENT DATE: 200911
